FAERS Safety Report 4887425-5 (Version None)
Quarter: 2006Q1

REPORT INFORMATION
  Report Type: 
  Country: None (occurrence: None)
  Receive Date: 20060123
  Receipt Date: 20060109
  Transmission Date: 20060701
  Serious: Yes (Hospitalization)
  Sender: FDA-Public Use
  Company Number: GBWYE284209JAN06

PATIENT
  Sex: Male
  Weight: 75 kg

DRUGS (2)
  1. ENBREL [Suspect]
     Indication: RHEUMATOID ARTHRITIS
     Route: 058
     Dates: start: 20031028, end: 20050815
  2. DICLOFENAC SODIUM [Concomitant]
     Dosage: UNKNOWN

REACTIONS (4)
  - ALVEOLITIS ALLERGIC [None]
  - CONDITION AGGRAVATED [None]
  - DRUG INEFFECTIVE [None]
  - LOWER RESPIRATORY TRACT INFECTION [None]
